FAERS Safety Report 9179911 (Version 7)
Quarter: 2013Q3

REPORT INFORMATION
  Report Type: Report from Study
  Country: US (occurrence: US)
  Receive Date: 20130321
  Receipt Date: 20130827
  Transmission Date: 20140515
  Serious: Yes (Other)
  Sender: FDA-Public Use
  Company Number: US-US-EMD SERONO, INC.-7199850

PATIENT
  Age: 54 Year
  Sex: Female
  Weight: 99 kg

DRUGS (8)
  1. REBIF [Suspect]
     Indication: MULTIPLE SCLEROSIS
     Route: 058
     Dates: start: 20121029, end: 20130220
  2. REBIF [Suspect]
     Route: 058
     Dates: start: 20130320, end: 201304
  3. REBIF [Suspect]
     Route: 058
     Dates: start: 20130520, end: 201307
  4. ASPIRIN                            /00002701/ [Concomitant]
     Indication: PRODUCT USED FOR UNKNOWN INDICATION
     Route: 048
  5. HYDROCHLOROTHIAZIDE [Concomitant]
     Indication: PRODUCT USED FOR UNKNOWN INDICATION
     Route: 048
  6. PROTONIX                           /01263201/ [Concomitant]
     Indication: PRODUCT USED FOR UNKNOWN INDICATION
  7. IBUPROFEN [Concomitant]
     Indication: PRODUCT USED FOR UNKNOWN INDICATION
  8. CALTRATE 600 + D [Concomitant]
     Indication: PRODUCT USED FOR UNKNOWN INDICATION

REACTIONS (6)
  - Pneumonia [Recovered/Resolved]
  - Bronchitis [Unknown]
  - Upper respiratory tract infection [Recovered/Resolved]
  - Feeling abnormal [Unknown]
  - Injection site reaction [Unknown]
  - Influenza like illness [Unknown]
